FAERS Safety Report 4939894-X (Version None)
Quarter: 2006Q1

REPORT INFORMATION
  Report Type: 
  Country: None (occurrence: None)
  Receive Date: 20060310
  Receipt Date: 20060301
  Transmission Date: 20060701
  Serious: Yes (Life-Threatening)
  Sender: FDA-Public Use
  Company Number: BR-GLAXOSMITHKLINE-A0596142A

PATIENT
  Age: 49 Year
  Sex: Male
  Weight: 74 kg

DRUGS (4)
  1. PAXIL CR [Suspect]
     Indication: DEPRESSION
     Dosage: 12.5MG PER DAY
     Route: 048
     Dates: start: 20060217, end: 20060224
  2. FLUOXETINE HCL [Suspect]
  3. VENLAFAXINE HCL [Suspect]
  4. LEXOTAN [Concomitant]
     Route: 048
     Dates: start: 20060218, end: 20060224

REACTIONS (12)
  - AUTONOMIC NERVOUS SYSTEM IMBALANCE [None]
  - CONFUSIONAL STATE [None]
  - DELIRIUM [None]
  - DYSPNOEA [None]
  - HYPERHIDROSIS [None]
  - HYPERTHERMIA [None]
  - IRRITABILITY [None]
  - MUSCLE RIGIDITY [None]
  - MYOCLONUS [None]
  - PSYCHOMOTOR HYPERACTIVITY [None]
  - SEROTONIN SYNDROME [None]
  - TREMOR [None]
